FAERS Safety Report 9422142 (Version 1)
Quarter: 2013Q3

REPORT INFORMATION
  Report Type: Spontaneous
  Country: US (occurrence: US)
  Receive Date: 20130726
  Receipt Date: 20130726
  Transmission Date: 20140515
  Serious: No
  Sender: FDA-Public Use
  Company Number: US-009507513-1307USA013309

PATIENT
  Age: 72 Year
  Sex: Female

DRUGS (2)
  1. SINEMET [Suspect]
     Indication: PARKINSONISM
     Dosage: UP TO 4.5 TABLETS/DAY
     Route: 048
  2. VALPROIC ACID [Concomitant]
     Indication: DEPRESSION
     Dosage: 1000 MG DAILY

REACTIONS (1)
  - Drug ineffective [Unknown]
